FAERS Safety Report 8205324-8 (Version None)
Quarter: 2012Q1

REPORT INFORMATION
  Report Type: 
  Country: None (occurrence: None)
  Receive Date: 20120309
  Receipt Date: 20120223
  Transmission Date: 20120608
  Serious: Yes (Hospitalization)
  Sender: FDA-Public Use
  Company Number: B0783693A

PATIENT
  Sex: Female

DRUGS (7)
  1. METOCLOPRAMIDE HYDROCHLORIDE [Concomitant]
  2. ENOXAPARIN [Concomitant]
  3. RANITIDINE HYDROCHLORIDE [Suspect]
     Indication: PRODUCT USED FOR UNKNOWN INDICATION
     Dosage: 50 MG / THREE TIMES PER DAY / INTRAVENOUS
     Route: 042
     Dates: start: 20120124, end: 20120125
  4. NEFOPAM HYDROCHLORIDE INJECTION (NEFOPAM HYDROCHLORIDE) [Suspect]
     Indication: PRODUCT USED FOR UNKNOWN INDICATION
     Dosage: 100 MG / PER DAY / INTRAVENOUS
     Route: 042
     Dates: start: 20120120, end: 20120125
  5. NICARDIPINE HYDROCHLORIDE [Suspect]
     Indication: HYPERTENSION
     Dosage: 2 MG / TWENTY FOUR TIMES PER DAY
     Dates: start: 20120124
  6. BRIMONIDINE TARTRATE [Concomitant]
  7. ACETAMINOPHEN [Concomitant]

REACTIONS (3)
  - CONFUSIONAL STATE [None]
  - PANCREATITIS [None]
  - DISORIENTATION [None]
